FAERS Safety Report 25497876 (Version 1)
Quarter: 2025Q3

REPORT INFORMATION
  Report Type: Spontaneous
  Country: EU (occurrence: EU)
  Receive Date: 20250701
  Receipt Date: 20250701
  Transmission Date: 20251021
  Serious: Yes (Hospitalization, Other)
  Sender: TEVA
  Company Number: None

PATIENT
  Age: 77 Year
  Sex: Male
  Weight: 73 kg

DRUGS (11)
  1. IVERMECTIN [Suspect]
     Active Substance: IVERMECTIN
     Indication: Scabies
     Route: 048
     Dates: start: 20250520
  2. RamiDipin [Concomitant]
     Indication: Essential hypertension
     Dosage: 1-0-0-0= TONOTEC, 10 MG/10 MG
     Route: 065
  3. AMILORIDE\BENDROFLUMETHIAZIDE [Concomitant]
     Active Substance: AMILORIDE\BENDROFLUMETHIAZIDE
     Indication: Essential hypertension
     Dosage: 0.5-0-0-0
     Route: 065
  4. METAMIZOLE [Concomitant]
     Active Substance: METAMIZOLE
     Indication: Pain
     Route: 065
  5. FUROSEMIDE [Concomitant]
     Active Substance: FUROSEMIDE
     Indication: Diuretic therapy
     Route: 065
  6. CHOLESTYRAMINE [Concomitant]
     Active Substance: CHOLESTYRAMINE
     Indication: Drug therapy
     Dosage: 1-1-1-0 COLESTYRAMIN-RATIOPHARM
     Route: 065
  7. Bisoprolol 1A Pharma [Concomitant]
     Indication: Pulse abnormal
     Dosage: 1-0-0-0
     Route: 065
  8. APIDRA [Concomitant]
     Active Substance: INSULIN GLULISINE
     Indication: Product used for unknown indication
     Dosage: 6-6-6-0 STOMACH, 10 MINUTES BEFORE EATING, IF NECESSARY + CORRECTION. APIDRA 100 U/ML SOLOSTAR PR...
     Route: 065
  9. PANCRELIPASE [Concomitant]
     Active Substance: PANCRELIPASE
     Indication: Drug therapy
     Dosage: 3-3-3-0 DURING MEALS, 25000
     Route: 065
  10. TOUJEO [Concomitant]
     Active Substance: INSULIN GLARGINE
     Indication: Product used for unknown indication
     Dosage: 0-0-0-14 THIGHS, 300 U/ML SOLOSTAR
     Route: 065
  11. EDOXABAN TOSYLATE [Concomitant]
     Active Substance: EDOXABAN TOSYLATE
     Indication: Atrial fibrillation
     Dosage: 1-0-0-0
     Route: 065

REACTIONS (6)
  - Cholestasis [Unknown]
  - Hepatitis acute [Not Recovered/Not Resolved]
  - Hepatic enzyme increased [Not Recovered/Not Resolved]
  - Hyperbilirubinaemia [Not Recovered/Not Resolved]
  - Jaundice cholestatic [Not Recovered/Not Resolved]
  - Cholangitis [Unknown]
